FAERS Safety Report 9386301 (Version 1)
Quarter: 2013Q3

REPORT INFORMATION
  Report Type: Report from Study
  Country: NL (occurrence: NL)
  Receive Date: 20130708
  Receipt Date: 20130708
  Transmission Date: 20140515
  Serious: Yes (Other)
  Sender: FDA-Public Use
  Company Number: NL-ROCHE-1245362

PATIENT
  Sex: 0

DRUGS (2)
  1. NELFINAVIR [Suspect]
     Indication: RECTAL CANCER
     Dosage: FOR AN OVERALL TREATMENT TIME OF 40 DAYS
     Route: 065
  2. CAPECITABINE [Suspect]
     Indication: RECTAL CANCER
     Dosage: FOR AN OVERALL TREATMENT TIME OF 40 DAYS
     Route: 065

REACTIONS (1)
  - Cholangitis [Unknown]
